FAERS Safety Report 18371849 (Version 2)
Quarter: 2020Q4

REPORT INFORMATION
  Report Type: Spontaneous
  Country: US (occurrence: US)
  Receive Date: 20201012
  Receipt Date: 20201102
  Transmission Date: 20210114
  Serious: Yes (Hospitalization)
  Sender: FDA-Public Use
  Company Number: US-GW PHARMA-202010USGW03394

PATIENT

DRUGS (62)
  1. EPIDIOLEX [Suspect]
     Active Substance: CANNABIDIOL
     Indication: IDIOPATHIC GENERALISED EPILEPSY
     Dosage: 10.04 MG/KG/DAY, PRESCRIBED 250 MILLIGRAM, BID FOR 30 DAYS
     Route: 048
     Dates: start: 20200908
  2. LAMOTRIGINE. [Concomitant]
     Active Substance: LAMOTRIGINE
     Dosage: 5 MILLIGRAM, BID (1 TABLET, BID, STRENGTH: 5 MG)
     Route: 048
     Dates: start: 20191024, end: 2020
  3. LAMOTRIGINE. [Concomitant]
     Active Substance: LAMOTRIGINE
     Dosage: 37.5 MILLIGRAM, BID (1.5 TABLET, BID, STRENGTH: 25 MG)
     Route: 048
     Dates: start: 20200318, end: 202003
  4. KEPPRA [Concomitant]
     Active Substance: LEVETIRACETAM
     Dosage: 500 MILLIGRAM, BID (1 TABLET TWICE A DAY FOR 30 DAYS)
     Route: 048
     Dates: start: 20200908
  5. PHENYTOIN. [Concomitant]
     Active Substance: PHENYTOIN
     Dosage: 125 MILLIGRAM, BID FOR 30 DAYS
     Route: 048
     Dates: start: 20200908
  6. POLYETHYLENE GLYCOL 3350. [Concomitant]
     Active Substance: POLYETHYLENE GLYCOL 3350
     Indication: PRODUCT USED FOR UNKNOWN INDICATION
     Dosage: 17 GRAM/DOSE
     Route: 048
     Dates: start: 20190918
  7. TOPIRAMATE. [Concomitant]
     Active Substance: TOPIRAMATE
     Dosage: 150 MILLIGRAM, BID (1.5 TABLETS, BID)
     Route: 048
     Dates: start: 20200316, end: 2020
  8. DIVALPROEX [Concomitant]
     Active Substance: DIVALPROEX SODIUM
     Dosage: 500 MILLIGRAM, TID (1 TABLET IN AM, NOON AND PM)
     Route: 048
     Dates: start: 20200317, end: 2020
  9. DIVALPROEX [Concomitant]
     Active Substance: DIVALPROEX SODIUM
     Dosage: 500 MILLIGRAM, TID (1 TABLET 3 TIMES A DAY FOR 30 DAYS)
     Route: 048
     Dates: start: 20200908
  10. KETOVIE 4:1 [Concomitant]
     Indication: PRODUCT USED FOR UNKNOWN INDICATION
     Dosage: UNK
     Route: 048
     Dates: start: 20200723, end: 202007
  11. KETOVIE 4:1 [Concomitant]
     Dosage: PRESCRIBED 3.4 GRAMS-156 KCAL/100 ML
     Route: 048
     Dates: start: 20200730
  12. SINGULAIR [Concomitant]
     Active Substance: MONTELUKAST SODIUM
     Dosage: 5 MILLIGRAM, QD (0.5 TABLET, QD)
     Route: 048
     Dates: start: 20200512, end: 2020
  13. PHOSPHA 250 NEUTRAL [Concomitant]
     Active Substance: POTASSIUM PHOSPHATE, MONOBASIC\SODIUM PHOSPHATE, DIBASIC, ANHYDROUS\SODIUM PHOSPHATE, MONOBASIC, MONOHYDRATE
     Dosage: 250 MILLIGRAM, BID (1 TABLET, BID)
     Route: 048
     Dates: start: 20200314, end: 2020
  14. SODIUM CHLORIDE. [Concomitant]
     Active Substance: SODIUM CHLORIDE
     Indication: PRODUCT USED FOR UNKNOWN INDICATION
     Dosage: 3 PERCENT, PRN
     Route: 065
     Dates: start: 20200401
  15. EPIDIOLEX [Suspect]
     Active Substance: CANNABIDIOL
     Indication: PARTIAL SEIZURES
     Dosage: 10.04 MG/KG/DAY, 250 MILLIGRAM, BID
     Route: 048
     Dates: start: 20191202, end: 2020
  16. BUDESONIDE. [Concomitant]
     Active Substance: BUDESONIDE
     Indication: PRODUCT USED FOR UNKNOWN INDICATION
     Dosage: 1 DOSAGE FORM, BID (1 VIAL, BID)
     Route: 065
     Dates: start: 20200921
  17. LAMICTAL [Concomitant]
     Active Substance: LAMOTRIGINE
     Indication: PRODUCT USED FOR UNKNOWN INDICATION
     Dosage: 1 TABLET, BID
     Route: 048
     Dates: start: 20200603
  18. VALPROIC ACID. [Concomitant]
     Active Substance: VALPROIC ACID
     Indication: PRODUCT USED FOR UNKNOWN INDICATION
     Dosage: UNK
     Route: 065
  19. EPIDIOLEX [Suspect]
     Active Substance: CANNABIDIOL
     Indication: LENNOX-GASTAUT SYNDROME
     Dosage: 250 MILLIGRAM
     Route: 048
     Dates: start: 20191109, end: 2019
  20. ALBUTEROL SULFATE. [Concomitant]
     Active Substance: ALBUTEROL SULFATE
     Indication: PRODUCT USED FOR UNKNOWN INDICATION
     Dosage: UNK, 0.083%
     Route: 065
     Dates: start: 20191002, end: 2020
  21. ONFI [Concomitant]
     Active Substance: CLOBAZAM
     Dosage: 20 MILLIGRAM, BID (2 TABLETS, BID, FOR 30 DAYS)
     Route: 048
     Dates: start: 20200510, end: 2020
  22. ONFI [Concomitant]
     Active Substance: CLOBAZAM
     Dosage: 25 MILLIGRAM, BID (2.5 TABLETS, BID, FOR 30 DAYS)
     Route: 048
     Dates: start: 20200913
  23. DIASTAT ACUDIAL [Concomitant]
     Active Substance: DIAZEPAM
     Indication: SEIZURE
     Dosage: 7.5 MG, 5 MINUTES OR LONGER (5 MG-7.5 MG-10 MG) RECTAL KIT
     Route: 054
     Dates: start: 20190823
  24. PHOSPHA 250 NEUTRAL [Concomitant]
     Active Substance: POTASSIUM PHOSPHATE, MONOBASIC\SODIUM PHOSPHATE, DIBASIC, ANHYDROUS\SODIUM PHOSPHATE, MONOBASIC, MONOHYDRATE
     Indication: PRODUCT USED FOR UNKNOWN INDICATION
     Dosage: UNK
     Route: 048
     Dates: start: 20191114, end: 2020
  25. PHOSPHA 250 NEUTRAL [Concomitant]
     Active Substance: POTASSIUM PHOSPHATE, MONOBASIC\SODIUM PHOSPHATE, DIBASIC, ANHYDROUS\SODIUM PHOSPHATE, MONOBASIC, MONOHYDRATE
     Dosage: 250 MILLIGRAM, BID (1 TABLET, BID)
     Route: 048
     Dates: start: 20200511
  26. PREDNISONE. [Concomitant]
     Active Substance: PREDNISONE
     Dosage: UNK (STRENGTH: 20 MG)
     Route: 048
     Dates: start: 20191009, end: 2020
  27. PREDNISONE. [Concomitant]
     Active Substance: PREDNISONE
     Dosage: UNK (STRENGTH: 10 MG)
     Route: 048
     Dates: start: 20200806
  28. BUDESONIDE. [Concomitant]
     Active Substance: BUDESONIDE
     Dosage: 1 VIAL, BID
     Route: 065
     Dates: start: 20200314, end: 2020
  29. CALCIUM [Concomitant]
     Active Substance: CALCIUM
     Indication: PRODUCT USED FOR UNKNOWN INDICATION
     Dosage: UNK, CONCENTRATION: 500 (UNIT NOT REPORTED)
     Route: 065
     Dates: start: 20200401
  30. DIAZEPAM. [Concomitant]
     Active Substance: DIAZEPAM
     Indication: SEIZURE
     Dosage: 15 MG, 5 MINUTES OR LONGER (12.5 MG-15 MG-17.5 MG)
     Route: 054
     Dates: start: 20200817
  31. LAMOTRIGINE. [Concomitant]
     Active Substance: LAMOTRIGINE
     Dosage: 5 MILLIGRAM, BID (1 TABLET, BID, STRENGTH: 5 MG)
     Route: 048
     Dates: start: 20200328, end: 2020
  32. KEPPRA [Concomitant]
     Active Substance: LEVETIRACETAM
     Indication: PRODUCT USED FOR UNKNOWN INDICATION
     Dosage: 500 MILLIGRAM, BID (1 TABLET TWICE A DAY FOR 30 DAYS)
     Route: 048
     Dates: start: 20200207, end: 2020
  33. TOPIRAMATE. [Concomitant]
     Active Substance: TOPIRAMATE
     Dosage: 150 MILLIGRAM, BID (1.5 TABLETS, BID)
     Route: 048
     Dates: start: 20200512, end: 2020
  34. VIGABATRIN. [Concomitant]
     Active Substance: VIGABATRIN
     Indication: PRODUCT USED FOR UNKNOWN INDICATION
     Dosage: MIX TWO PACKETS IN 20 ML OF LIQUID AND GIVE 15 ML BY MOUTH TWICE DAILY-DISCARD UNUSED SOLUTION
     Route: 048
     Dates: start: 20200828
  35. BUDESONIDE. [Concomitant]
     Active Substance: BUDESONIDE
     Indication: PRODUCT USED FOR UNKNOWN INDICATION
     Dosage: 1 VIAL, BID
     Route: 065
     Dates: start: 20191024, end: 2020
  36. BUDESONIDE. [Concomitant]
     Active Substance: BUDESONIDE
     Dosage: 1 VIAL, BID
     Route: 065
     Dates: start: 20200513
  37. LAMOTRIGINE. [Concomitant]
     Active Substance: LAMOTRIGINE
     Dosage: 50 MILLIGRAM, BID (STRENGTH: 25 MG)
     Route: 048
     Dates: start: 20200928
  38. SINGULAIR [Concomitant]
     Active Substance: MONTELUKAST SODIUM
     Indication: PRODUCT USED FOR UNKNOWN INDICATION
     Dosage: UNK
     Route: 048
     Dates: start: 20191104, end: 2020
  39. SINGULAIR [Concomitant]
     Active Substance: MONTELUKAST SODIUM
     Dosage: 5 MILLIGRAM, QD (0.5 TABLET, QD)
     Route: 048
     Dates: start: 20200316, end: 2020
  40. SINGULAIR [Concomitant]
     Active Substance: MONTELUKAST SODIUM
     Dosage: 5 MILLIGRAM, QD (0.5 TABLET, QD)
     Route: 048
     Dates: start: 20200904
  41. OSELTAMIVIR [Concomitant]
     Active Substance: OSELTAMIVIR
     Indication: PRODUCT USED FOR UNKNOWN INDICATION
     Dosage: UNK
     Route: 048
     Dates: start: 20190208
  42. POTASSIUM CITRATE. [Concomitant]
     Active Substance: POTASSIUM CITRATE
     Indication: PRODUCT USED FOR UNKNOWN INDICATION
     Dosage: 540 MG
     Route: 048
     Dates: start: 20191108, end: 2020
  43. ALBUTEROL SULFATE. [Concomitant]
     Active Substance: ALBUTEROL SULFATE
     Dosage: UNK, 0.083%
     Route: 065
     Dates: start: 20200401, end: 2020
  44. ONFI [Concomitant]
     Active Substance: CLOBAZAM
     Indication: PRODUCT USED FOR UNKNOWN INDICATION
     Dosage: 20 MILLIGRAM, BID (2 TABLETS, BID, FOR 30 DAYS)
     Route: 048
     Dates: start: 20191112, end: 2020
  45. ONFI [Concomitant]
     Active Substance: CLOBAZAM
     Dosage: 20 MILLIGRAM, BID (2 TABLETS, BID, FOR 30 DAYS)
     Route: 048
     Dates: start: 20200302, end: 2020
  46. LAMOTRIGINE. [Concomitant]
     Active Substance: LAMOTRIGINE
     Dosage: 37.5 MILLIGRAM, BID (1.5 TABLET, BID, STRENGTH: 25 MG)
     Route: 048
     Dates: start: 20200510, end: 2020
  47. PHENYTOIN. [Concomitant]
     Active Substance: PHENYTOIN
     Indication: PRODUCT USED FOR UNKNOWN INDICATION
     Dosage: 125 MILLIGRAM, BID (2.5 TABLET, BID FOR 30 DAYS)
     Route: 048
     Dates: start: 20200317, end: 2020
  48. PHENYTOIN. [Concomitant]
     Active Substance: PHENYTOIN
     Dosage: 125 MILLIGRAM, BID (2.5 TABLET, BID FOR 30 DAYS)
     Route: 048
     Dates: start: 20200510, end: 2020
  49. PREDNISONE. [Concomitant]
     Active Substance: PREDNISONE
     Indication: PRODUCT USED FOR UNKNOWN INDICATION
     Dosage: UNK (STRENGTH: 10 MG)
     Route: 048
     Dates: start: 20191005, end: 201910
  50. SABRIL [Concomitant]
     Active Substance: VIGABATRIN
     Indication: PRODUCT USED FOR UNKNOWN INDICATION
     Dosage: 2 PACKETS WITH 20 ML OF WATER, GIVE 750 TOSS TEST
     Route: 048
     Dates: start: 20191202
  51. TOPIRAMATE. [Concomitant]
     Active Substance: TOPIRAMATE
     Indication: PRODUCT USED FOR UNKNOWN INDICATION
     Dosage: 150 MILLIGRAM, BID (1.5 TABLETS, BID)
     Route: 048
     Dates: start: 20191017, end: 2020
  52. VITAMIN C [Concomitant]
     Active Substance: ASCORBIC ACID
     Indication: PRODUCT USED FOR UNKNOWN INDICATION
     Dosage: UNK
     Route: 065
     Dates: start: 20200401
  53. DEPAKOTE [Concomitant]
     Active Substance: DIVALPROEX SODIUM
     Indication: PRODUCT USED FOR UNKNOWN INDICATION
     Dosage: UNK
     Route: 065
  54. ALBUTEROL SULFATE. [Concomitant]
     Active Substance: ALBUTEROL SULFATE
     Dosage: UNK, 0.083%
     Route: 065
     Dates: start: 20200806
  55. CENTRUM PLUS [Concomitant]
     Active Substance: VITAMINS
     Indication: PRODUCT USED FOR UNKNOWN INDICATION
     Dosage: UNK
     Route: 065
     Dates: start: 20200401
  56. DIVALPROEX [Concomitant]
     Active Substance: DIVALPROEX SODIUM
     Indication: PRODUCT USED FOR UNKNOWN INDICATION
     Dosage: 1250 MILLIGRAM, QD (1.5 TABLET IN MORNING AND 2 TABS IN EVENING)
     Route: 048
     Dates: start: 20191114, end: 2020
  57. DIVALPROEX [Concomitant]
     Active Substance: DIVALPROEX SODIUM
     Dosage: 500 MILLIGRAM, TID (1 TABLET 3 TIMES A DAY FOR 30 DAYS)
     Route: 048
     Dates: start: 20200511, end: 2020
  58. LAMOTRIGINE. [Concomitant]
     Active Substance: LAMOTRIGINE
     Indication: PRODUCT USED FOR UNKNOWN INDICATION
     Dosage: 37.5 MILLIGRAM, BID (1.5 TABLET, BID, STRENGTH 25 MG)
     Route: 048
     Dates: start: 20191108, end: 2020
  59. KEPPRA [Concomitant]
     Active Substance: LEVETIRACETAM
     Dosage: 500 MILLIGRAM, BID (1 TABLET TWICE A DAY FOR 30 DAYS)
     Route: 048
     Dates: start: 20200511, end: 2020
  60. LEVOTHYROXINE. [Concomitant]
     Active Substance: LEVOTHYROXINE
     Indication: PRODUCT USED FOR UNKNOWN INDICATION
     Dosage: UNK
     Route: 048
     Dates: start: 20200921
  61. POTASSIUM CITRATE. [Concomitant]
     Active Substance: POTASSIUM CITRATE
     Dosage: 540 MG
     Route: 048
     Dates: start: 20200921
  62. TOPIRAMATE. [Concomitant]
     Active Substance: TOPIRAMATE
     Dosage: 150 MILLIGRAM, BID (1.5 TABLETS, BID)
     Route: 048
     Dates: start: 20200911

REACTIONS (5)
  - Status epilepticus [Recovered/Resolved]
  - Seizure [Recovering/Resolving]
  - Drug ineffective [Unknown]
  - Pyrexia [Recovered/Resolved]
  - Respiratory distress [Recovered/Resolved]

NARRATIVE: CASE EVENT DATE: 201912
